FAERS Safety Report 8923801 (Version 2)
Quarter: 2013Q1

REPORT INFORMATION
  Report Type: Spontaneous
  Country: AT (occurrence: AT)
  Receive Date: 20121126
  Receipt Date: 20130226
  Transmission Date: 20140127
  Serious: Yes (Other)
  Sender: FDA-Public Use
  Company Number: JP-ASTRAZENECA-2012SE87825

PATIENT
  Age: 68 Year
  Sex: Male

DRUGS (3)
  1. BLOPRESS PLUS [Suspect]
     Indication: PRODUCT USED FOR UNKNOWN INDICATION
     Dosage: 16/12.5 MG, FREQUENCY UNKNOWN
     Route: 048
  2. MARCOUMAR [Concomitant]
     Route: 065
  3. SELOKEN [Concomitant]
     Route: 065

REACTIONS (1)
  - Mesothelioma [Unknown]
